FAERS Safety Report 4640647-0 (Version None)
Quarter: 2005Q2

REPORT INFORMATION
  Report Type: 
  Country: None (occurrence: None)
  Receive Date: 20050419
  Receipt Date: 20050405
  Transmission Date: 20051028
  Serious: Yes (Hospitalization)
  Sender: FDA-Public Use
  Company Number: R301224-PRT05T-J

PATIENT
  Age: 64 Year
  Sex: Male

DRUGS (1)
  1. E3810 (RABEPRAZOLE) [Suspect]
     Indication: REFLUX OESOPHAGITIS
     Dosage: 10 MG, 1 IN 1 D, ORAL
     Route: 048
     Dates: start: 20040616

REACTIONS (1)
  - NEOPLASM MALIGNANT [None]
